FAERS Safety Report 4536326-0 (Version None)
Quarter: 2004Q4

REPORT INFORMATION
  Report Type: 
  Country: None (occurrence: None)
  Receive Date: 20041223
  Receipt Date: 20040709
  Transmission Date: 20050328
  Serious: No
  Sender: FDA-Public Use
  Company Number: US-GLAXOSMITHKLINE-A0517694A

PATIENT
  Age: 78 Year
  Sex: Male

DRUGS (2)
  1. FLONASE [Suspect]
     Dosage: 2PUFF TWICE PER DAY
     Route: 045
     Dates: start: 20040525, end: 20040701
  2. ALLEGRA [Concomitant]

REACTIONS (4)
  - EPISTAXIS [None]
  - POSTNASAL DRIP [None]
  - RHINORRHOEA [None]
  - UPPER RESPIRATORY TRACT CONGESTION [None]
